FAERS Safety Report 5448660-0 (Version None)
Quarter: 2007Q3

REPORT INFORMATION
  Report Type: 
  Country: None (occurrence: None)
  Receive Date: 20070911
  Receipt Date: 20070906
  Transmission Date: 20080115
  Serious: Yes (Hospitalization)
  Sender: FDA-Public Use
  Company Number: HQWYE078910SEP07

PATIENT
  Sex: Male
  Weight: 76.27 kg

DRUGS (14)
  1. TORISEL [Suspect]
     Indication: METASTATIC RENAL CELL CARCINOMA
     Route: 042
     Dates: start: 20070613
  2. SYNTHROID [Concomitant]
     Dosage: NOT PROVIDED
  3. LEXAPRO [Concomitant]
     Dosage: NOT PROVIDED
  4. PREVACID [Concomitant]
     Dosage: NOT PROVIDED
  5. CONJUGATED ESTROGENS [Concomitant]
     Dosage: NOT PROVIDED
  6. ALLEGRA [Concomitant]
     Dosage: NOT PROVIDED
  7. IMIPRAMINE [Concomitant]
     Dosage: NOT PROVIDED
  8. INSULIN [Concomitant]
     Dosage: NOT PROVIDED
  9. OXYCONTIN [Concomitant]
     Dosage: NOT PROVIDED
  10. OXYCODONE HCL [Concomitant]
     Dosage: NOT PROVIDED
  11. ALLOPURINOL [Suspect]
     Indication: GOUT
     Dosage: NOT PROVIDED ^STARTED RECENTLY^
  12. KLONOPIN [Concomitant]
     Dosage: NOT PROVIDED
  13. SINGULAIR [Concomitant]
     Dosage: NOT PROVIDED
  14. DIFLUCAN [Concomitant]
     Dosage: NOT PROVIDED

REACTIONS (1)
  - ANGIOEDEMA [None]
